FAERS Safety Report 25202655 (Version 1)
Quarter: 2025Q2

REPORT INFORMATION
  Report Type: Spontaneous
  Country: US (occurrence: US)
  Receive Date: 20250416
  Receipt Date: 20250416
  Transmission Date: 20250716
  Serious: Yes (Other)
  Sender: GLAND PHARMA
  Company Number: US-GLANDPHARMA-US-2025GLNLIT00991

PATIENT
  Age: 68 Year
  Sex: Female

DRUGS (2)
  1. ESMOLOL HYDROCHLORIDE [Suspect]
     Active Substance: ESMOLOL HYDROCHLORIDE
     Indication: Atrial fibrillation
     Route: 065
  2. PROPYLENE GLYCOL [Suspect]
     Active Substance: PROPYLENE GLYCOL
     Indication: Atrial fibrillation
     Route: 065

REACTIONS (9)
  - Lactic acidosis [Recovered/Resolved]
  - Acute kidney injury [Unknown]
  - Electrocardiogram QT prolonged [Unknown]
  - Toxicity to various agents [Unknown]
  - Mean arterial pressure decreased [Unknown]
  - Metabolic acidosis [Unknown]
  - Tachycardia [Unknown]
  - Cyanosis [Unknown]
  - Haemodynamic instability [Unknown]
